FAERS Safety Report 4299722-5 (Version None)
Quarter: 2004Q1

REPORT INFORMATION
  Report Type: 
  Country: None (occurrence: None)
  Receive Date: 20040126
  Receipt Date: 20031120
  Transmission Date: 20041129
  Serious: No
  Sender: FDA-Public Use
  Company Number: USA031152324

PATIENT
  Age: 15 Year
  Sex: Male
  Weight: 52 kg

DRUGS (2)
  1. STRATTERA [Suspect]
     Indication: VISION BLURRED
     Dosage: 25 MG/DAY
     Route: 048
     Dates: start: 20030501
  2. AMINO ACIDS NOS [Concomitant]

REACTIONS (5)
  - CHEST PAIN [None]
  - DYSPEPSIA [None]
  - HYPERSOMNIA [None]
  - INSOMNIA [None]
  - PALPITATIONS [None]
